FAERS Safety Report 8255016-4 (Version None)
Quarter: 2012Q2

REPORT INFORMATION
  Report Type: 
  Country: None (occurrence: None)
  Receive Date: 20120403
  Receipt Date: 20120326
  Transmission Date: 20120825
  Serious: No
  Sender: FDA-Public Use
  Company Number: US-BAYER-2012-031861

PATIENT
  Sex: Female

DRUGS (2)
  1. ALEVE (CAPLET) [Suspect]
     Indication: MYALGIA
     Dosage: 2 TABLETS TWICE DAILY - 100 COUNT
     Route: 048
     Dates: start: 20120301
  2. LIPITOR [Concomitant]

REACTIONS (1)
  - CHROMATURIA [None]
